FAERS Safety Report 9508005 (Version 1)
Quarter: 2013Q1

REPORT INFORMATION
  Report Type: Spontaneous
  Country: US (occurrence: None)
  Receive Date: 20130305
  Receipt Date: 20130305
  Transmission Date: 20140127
  Serious: Yes (Other)
  Sender: FDA-Public Use
  Company Number: 163-21880-12090168

PATIENT
  Age: 73 Year
  Sex: Female

DRUGS (9)
  1. REVLIMID [Suspect]
     Indication: PLASMA CELL MYELOMA
     Dosage: 10 MG, MONDAY AND THURSDAY EACH WEEK, PO
     Route: 048
     Dates: start: 20081015
  2. AMLODIPINE (AMLODIPINE) (UNKNOWN) [Concomitant]
  3. PREDNISONE (PREDNISONE) (UNKNOWN) [Concomitant]
  4. DIOVAN (UNKNOWN) [Concomitant]
  5. ALKERAN (MELPHALAN) (UNKNOWN) [Concomitant]
  6. SODIUM BICARBONATE (SODIUM BICARBONATE) (TABLETS) [Concomitant]
  7. HYDROCODONE-ACETAMINOPHEN (VICODIN) (UNKNOWN) [Concomitant]
  8. VITAMIN D (ERGOCALCIFEROL) (UNKNOWN) [Concomitant]
  9. ZANTAC (RANITIDINE HYDROCHLORIDE) (UNKNOWN) [Concomitant]

REACTIONS (1)
  - Influenza like illness [None]
